FAERS Safety Report 4883155-4 (Version None)
Quarter: 2006Q1

REPORT INFORMATION
  Report Type: 
  Country: None (occurrence: None)
  Receive Date: 20060117
  Receipt Date: 20060117
  Transmission Date: 20060701
  Serious: No
  Sender: FDA-Public Use
  Company Number: None

PATIENT

DRUGS (1)
  1. SUPHEDRINE PE  MAXIMUM STRENGTH -10 MG EACH -   TARGET CORPORATION [Suspect]
     Indication: NASAL CONGESTION
     Dosage: 1 TABLET 10 MG  EVERY 4 HOURS  PO
     Route: 048

REACTIONS (4)
  - HEART RATE INCREASED [None]
  - MEDICATION ERROR [None]
  - OVERDOSE [None]
  - SINUSITIS [None]
